FAERS Safety Report 13854295 (Version 1)
Quarter: 2017Q3

REPORT INFORMATION
  Report Type: Report from Study
  Country: None (occurrence: US)
  Receive Date: 20170809
  Receipt Date: 20170809
  Transmission Date: 20171127
  Serious: Yes (Other)
  Sender: FDA-Public Use
  Company Number: US-ABBVIE-17P-163-2061062-00

PATIENT
  Sex: Female

DRUGS (3)
  1. VENCLEXTA [Suspect]
     Active Substance: VENETOCLAX
     Route: 048
  2. VENCLEXTA [Suspect]
     Active Substance: VENETOCLAX
     Indication: ACUTE MYELOID LEUKAEMIA
     Dosage: FOR ONE WEEK
     Route: 048
     Dates: start: 20170413
  3. VENCLEXTA [Suspect]
     Active Substance: VENETOCLAX
     Indication: REMISSION NOT ACHIEVED
     Dosage: FOR ONE WEEK
     Route: 048

REACTIONS (3)
  - Coagulation time prolonged [Not Recovered/Not Resolved]
  - Vomiting [Not Recovered/Not Resolved]
  - Skin discolouration [Not Recovered/Not Resolved]
